FAERS Safety Report 23920837 (Version 1)
Quarter: 2024Q2

REPORT INFORMATION
  Report Type: Spontaneous
  Country: US (occurrence: US)
  Receive Date: 20240530
  Receipt Date: 20240530
  Transmission Date: 20240716
  Serious: Yes (Other)
  Sender: FDA-Public Use
  Company Number: US-AMGEN-USASP2024101769

PATIENT
  Age: 40 Year
  Sex: Female

DRUGS (3)
  1. CINACALCET HYDROCHLORIDE [Suspect]
     Active Substance: CINACALCET HYDROCHLORIDE
     Indication: Hyperparathyroidism primary
     Dosage: UNK
     Route: 065
  2. PROLIA [Suspect]
     Active Substance: DENOSUMAB
     Indication: Product used for unknown indication
     Dosage: UNK
     Route: 065
  3. SORAFENIB [Concomitant]
     Active Substance: SORAFENIB
     Dosage: UNK
     Route: 065

REACTIONS (4)
  - Parathyroid tumour malignant [Unknown]
  - Pneumothorax [Unknown]
  - Pulmonary bullae rupture [Unknown]
  - Tracheal compression [Unknown]
